FAERS Safety Report 14526769 (Version 2)
Quarter: 2018Q3

REPORT INFORMATION
  Report Type: Spontaneous
  Country: US (occurrence: US)
  Receive Date: 20180213
  Receipt Date: 20180705
  Transmission Date: 20181010
  Serious: Yes (Hospitalization, Other)
  Sender: FDA-Public Use
  Company Number: US-BAYER-2018-021648

PATIENT
  Age: 76 Year
  Sex: Male

DRUGS (2)
  1. HYDROCODONE/ACETAMINOPHEN [Suspect]
     Active Substance: ACETAMINOPHEN\HYDROCODONE
  2. STIVARGA [Suspect]
     Active Substance: REGORAFENIB
     Indication: COLON CANCER STAGE IV
     Dosage: 160 MG
     Route: 048
     Dates: start: 20170531, end: 20180109

REACTIONS (4)
  - Small intestinal obstruction [Not Recovered/Not Resolved]
  - Pain [Not Recovered/Not Resolved]
  - Pulmonary embolism [Not Recovered/Not Resolved]
  - Constipation [None]

NARRATIVE: CASE EVENT DATE: 20180116
